FAERS Safety Report 10450817 (Version 1)
Quarter: 2014Q3

REPORT INFORMATION
  Report Type: Spontaneous
  Country: US (occurrence: US)
  Receive Date: 20140912
  Receipt Date: 20140912
  Transmission Date: 20150326
  Serious: No
  Sender: FDA-Public Use
  Company Number: US-BAUSCH-SYM-2014-21467

PATIENT
  Sex: Female

DRUGS (1)
  1. PENTOXIFYLLINE ER TABLETS [Suspect]
     Active Substance: PENTOXIFYLLINE
     Indication: EYE DISORDER
     Route: 048
     Dates: start: 20140417

REACTIONS (4)
  - Vision blurred [Unknown]
  - Off label use [Unknown]
  - Headache [Unknown]
  - Dizziness [Unknown]

NARRATIVE: CASE EVENT DATE: 20140417
